FAERS Safety Report 9307610 (Version 1)
Quarter: 2013Q2

REPORT INFORMATION
  Report Type: Spontaneous
  Country: US (occurrence: US)
  Receive Date: 20130524
  Receipt Date: 20130524
  Transmission Date: 20140414
  Serious: No
  Sender: FDA-Public Use
  Company Number: US-PFIZER INC-2013158315

PATIENT
  Sex: Female

DRUGS (2)
  1. CHANTIX [Suspect]
     Dosage: UNK
     Dates: start: 201305
  2. PREDNISONE [Interacting]
     Indication: EXPOSURE TO TOXIC AGENT
     Dosage: UNK

REACTIONS (3)
  - Exposure to toxic agent [Unknown]
  - Drug interaction [Unknown]
  - Drug ineffective [Unknown]
